FAERS Safety Report 13737215 (Version 1)
Quarter: 2017Q3

REPORT INFORMATION
  Report Type: Spontaneous
  Country: US (occurrence: US)
  Receive Date: 20170710
  Receipt Date: 20170710
  Transmission Date: 20171127
  Serious: Yes (Other)
  Sender: FDA-Public Use
  Company Number: US-SAOL THERAPEUTICS-2016SAO00048

PATIENT
  Age: 55 Year
  Sex: Male

DRUGS (4)
  1. COMPOUNDED BACLOFEN [Suspect]
     Active Substance: BACLOFEN
     Indication: MUSCLE SPASTICITY
     Dosage: 639.6 UNK, \DAY
     Route: 037
     Dates: start: 201605
  2. FENTANYL. [Suspect]
     Active Substance: FENTANYL
     Indication: SPINAL CORD INJURY
  3. FENTANYL. [Suspect]
     Active Substance: FENTANYL
     Indication: MUSCLE SPASTICITY
     Dosage: 1279.2 UNK, \DAY
     Route: 037
     Dates: start: 20160517
  4. COMPOUNDED BACLOFEN [Suspect]
     Active Substance: BACLOFEN
     Indication: SPINAL CORD INJURY

REACTIONS (2)
  - Device alarm issue [Recovered/Resolved]
  - Musculoskeletal stiffness [Unknown]

NARRATIVE: CASE EVENT DATE: 201605
